FAERS Safety Report 19623586 (Version 1)
Quarter: 2021Q3

REPORT INFORMATION
  Report Type: Spontaneous
  Country: US (occurrence: US)
  Receive Date: 20210728
  Receipt Date: 20210728
  Transmission Date: 20211014
  Serious: No
  Sender: FDA-Public Use
  Company Number: US-ASTRAZENECA-2021A604923

PATIENT
  Age: 77 Year
  Sex: Female

DRUGS (3)
  1. CALQUENCE [Suspect]
     Active Substance: ACALABRUTINIB
     Indication: LEUKAEMIA
     Route: 048
     Dates: start: 2020
  2. VALACYCLOVIR [Concomitant]
     Active Substance: VALACYCLOVIR HYDROCHLORIDE
     Dosage: UNKNOWN
     Route: 065
  3. CALQUENCE [Suspect]
     Active Substance: ACALABRUTINIB
     Indication: LEUKAEMIA
     Dosage: CUTTING A CAPSULE IN HALF AND PUTTING HALF OF THE MEDICINE INTO A GELATIN CAPSULE AND TOOK HALF O...
     Route: 048

REACTIONS (3)
  - Atrial tachycardia [Recovered/Resolved]
  - Intentional product misuse [Unknown]
  - Headache [Recovered/Resolved]

NARRATIVE: CASE EVENT DATE: 2020
